FAERS Safety Report 19081307 (Version 2)
Quarter: 2022Q2

REPORT INFORMATION
  Report Type: Report from Study
  Country: CA (occurrence: CA)
  Receive Date: 20210331
  Receipt Date: 20220527
  Transmission Date: 20220720
  Serious: Yes (Hospitalization)
  Sender: FDA-Public Use
  Company Number: CA-JNJFOC-20210353286

PATIENT
  Sex: Male

DRUGS (1)
  1. ABIRATERONE ACETATE [Suspect]
     Active Substance: ABIRATERONE ACETATE
     Indication: Prostate cancer metastatic
     Route: 048
     Dates: end: 20161231

REACTIONS (8)
  - Cardiac failure [Unknown]
  - Arrhythmia [Unknown]
  - Cardiovascular disorder [Unknown]
  - Cerebrovascular accident [Unknown]
  - Peripheral arterial occlusive disease [Unknown]
  - Embolism venous [Unknown]
  - Myocardial infarction [Unknown]
  - Angina unstable [Unknown]
